FAERS Safety Report 25407743 (Version 1)
Quarter: 2025Q2

REPORT INFORMATION
  Report Type: Spontaneous
  Country: CH (occurrence: CH)
  Receive Date: 20250606
  Receipt Date: 20250606
  Transmission Date: 20250717
  Serious: Yes (Other)
  Sender: ABBVIE
  Company Number: CH-ABBVIE-6262166

PATIENT
  Sex: Female

DRUGS (26)
  1. VENCLEXTA [Suspect]
     Active Substance: VENETOCLAX
     Indication: Acute myeloid leukaemia
     Route: 048
     Dates: start: 20241218, end: 20241228
  2. VENCLEXTA [Suspect]
     Active Substance: VENETOCLAX
     Indication: Acute myeloid leukaemia
     Route: 048
     Dates: start: 20240603, end: 20240630
  3. VENCLEXTA [Suspect]
     Active Substance: VENETOCLAX
     Indication: Acute myeloid leukaemia
     Route: 048
     Dates: start: 20240311, end: 20240421
  4. VENCLEXTA [Suspect]
     Active Substance: VENETOCLAX
     Indication: Acute myeloid leukaemia
     Route: 048
     Dates: start: 20240422, end: 20240602
  5. VENCLEXTA [Suspect]
     Active Substance: VENETOCLAX
     Indication: Acute myeloid leukaemia
     Route: 048
     Dates: start: 20240813, end: 20240917
  6. VENCLEXTA [Suspect]
     Active Substance: VENETOCLAX
     Indication: Acute myeloid leukaemia
     Route: 048
     Dates: start: 20240917, end: 20241014
  7. VENCLEXTA [Suspect]
     Active Substance: VENETOCLAX
     Indication: Acute myeloid leukaemia
     Route: 048
     Dates: start: 20240129, end: 20240310
  8. VENCLEXTA [Suspect]
     Active Substance: VENETOCLAX
     Indication: Acute myeloid leukaemia
     Route: 048
     Dates: start: 20241015, end: 20241110
  9. VENCLEXTA [Suspect]
     Active Substance: VENETOCLAX
     Indication: Acute myeloid leukaemia
     Route: 048
     Dates: start: 20231228
  10. VENCLEXTA [Suspect]
     Active Substance: VENETOCLAX
     Indication: Acute myeloid leukaemia
     Route: 048
     Dates: start: 20241111, end: 20241217
  11. VENCLEXTA [Suspect]
     Active Substance: VENETOCLAX
     Indication: Acute myeloid leukaemia
     Route: 048
     Dates: start: 20250312
  12. VENCLEXTA [Suspect]
     Active Substance: VENETOCLAX
     Indication: Acute myeloid leukaemia
     Route: 048
     Dates: start: 20240701, end: 20240812
  13. VENCLEXTA [Suspect]
     Active Substance: VENETOCLAX
     Indication: Acute myeloid leukaemia
     Route: 048
     Dates: start: 20250203, end: 20250203
  14. AZACITIDINE [Suspect]
     Active Substance: AZACITIDINE
     Indication: Acute myeloid leukaemia
     Route: 065
     Dates: start: 20241111, end: 20241217
  15. AZACITIDINE [Suspect]
     Active Substance: AZACITIDINE
     Indication: Acute myeloid leukaemia
     Dosage: FREQUENCY TEXT: 300MG/WEEK
     Route: 065
     Dates: start: 20240603, end: 20240630
  16. AZACITIDINE [Suspect]
     Active Substance: AZACITIDINE
     Indication: Acute myeloid leukaemia
     Dosage: FREQUENCY TEXT: 300MG/WEEK
     Route: 065
     Dates: start: 20240813, end: 20240917
  17. AZACITIDINE [Suspect]
     Active Substance: AZACITIDINE
     Indication: Acute myeloid leukaemia
     Route: 065
     Dates: start: 20231228, end: 20240128
  18. AZACITIDINE [Suspect]
     Active Substance: AZACITIDINE
     Indication: Acute myeloid leukaemia
     Dosage: FREQUENCY TEXT: 300MG/WEEK
     Route: 065
     Dates: start: 20240701, end: 20240812
  19. AZACITIDINE [Suspect]
     Active Substance: AZACITIDINE
     Indication: Acute myeloid leukaemia
     Route: 065
     Dates: start: 20241015, end: 20241110
  20. AZACITIDINE [Suspect]
     Active Substance: AZACITIDINE
     Indication: Acute myeloid leukaemia
     Route: 065
     Dates: start: 20241218, end: 20250203
  21. AZACITIDINE [Suspect]
     Active Substance: AZACITIDINE
     Indication: Acute myeloid leukaemia
     Dosage: FREQUENCY TEXT: 500MG/WEEK
     Route: 065
     Dates: start: 20240917, end: 20241014
  22. AZACITIDINE [Suspect]
     Active Substance: AZACITIDINE
     Indication: Acute myeloid leukaemia
     Route: 065
     Dates: start: 20240311, end: 20240421
  23. AZACITIDINE [Suspect]
     Active Substance: AZACITIDINE
     Indication: Acute myeloid leukaemia
     Route: 065
     Dates: start: 20240422, end: 20240602
  24. AZACITIDINE [Suspect]
     Active Substance: AZACITIDINE
     Indication: Acute myeloid leukaemia
     Route: 065
     Dates: start: 20240129, end: 20240310
  25. CYTARABINE [Suspect]
     Active Substance: CYTARABINE
     Indication: Acute myeloid leukaemia
     Route: 065
     Dates: start: 20250312, end: 20250329
  26. CLADRIBINE [Suspect]
     Active Substance: CLADRIBINE
     Indication: Acute myeloid leukaemia
     Route: 065
     Dates: start: 20250312, end: 20250429

REACTIONS (21)
  - Acute myeloid leukaemia recurrent [Not Recovered/Not Resolved]
  - Off label use [Unknown]
  - Neutropenia [Recovered/Resolved]
  - Infection [Unknown]
  - Thrombocytopenia [Recovered/Resolved]
  - Neutropenia [Recovered/Resolved]
  - Neutropenia [Recovered/Resolved]
  - Thrombocytopenia [Recovered/Resolved]
  - Thrombocytopenia [Recovered/Resolved]
  - Neutropenia [Recovered/Resolved]
  - Thrombocytopenia [Recovered/Resolved]
  - Neutropenia [Recovered/Resolved]
  - Thrombocytopenia [Recovered/Resolved]
  - Thrombocytopenia [Recovered/Resolved]
  - Neutropenia [Recovered/Resolved]
  - Thrombocytopenia [Recovered/Resolved]
  - Thrombocytopenia [Recovered/Resolved]
  - Neutropenia [Recovered/Resolved]
  - Thrombocytopenia [Recovered/Resolved]
  - Neutropenia [Recovered/Resolved]
  - Bone marrow failure [Unknown]

NARRATIVE: CASE EVENT DATE: 20240101
